FAERS Safety Report 19797001 (Version 1)
Quarter: 2021Q3

REPORT INFORMATION
  Report Type: Spontaneous
  Country: NL (occurrence: NL)
  Receive Date: 20210907
  Receipt Date: 20210907
  Transmission Date: 20211014
  Serious: Yes (Hospitalization)
  Sender: FDA-Public Use
  Company Number: NL-MYLANLABS-2021M1058720

PATIENT
  Sex: Male
  Weight: 80 kg

DRUGS (11)
  1. THIAMINE. [Concomitant]
     Active Substance: THIAMINE
     Dosage: 50 MILLIGRAM, QD (1 X PER DAY 1 PIECE)
  2. ASCORBINEZUUR [Concomitant]
     Dosage: 500 MILLIGRAM, QD (1 X PER DAY 1 PIECE)
  3. TIOTROPIUM [Concomitant]
     Active Substance: TIOTROPIUM
     Dosage: 18 MICROGRAM, QD (1 X PER DAY 1 PIECE)
  4. ACENOCOUMAROL [Concomitant]
     Active Substance: ACENOCOUMAROL
     Dosage: ACCORDING TO SCHEDULE
  5. VITAMINE B COMPLEX [Concomitant]
     Active Substance: CYANOCOBALAMIN\PYRIDOXINE HYDROCHLORIDE\RIBOFLAVIN\SODIUM PANTOTHENATE\THIAMINE HYDROCHLORIDE\VITAMIN B COMPLEX
     Dosage: UNK UNK, QD (1 X PER DAY 1 PIECE)
  6. METFORMINE                         /00082701/ [Concomitant]
     Active Substance: METFORMIN HYDROCHLORIDE
     Dosage: 1000 MILLIGRAM, BID (2 X PER DAG 2 STUKS)
  7. PANTOPRAZOL                        /01263201/ [Concomitant]
     Active Substance: PANTOPRAZOLE
     Dosage: 20 MILLIGRAM, QD (1 X PER DAY 1 PIECE)
  8. BECLOMETASONE;FORMOTEROL [Concomitant]
     Active Substance: BECLOMETHASONE\FORMOTEROL
     Dosage: 2 DOSAGE FORM, BID (2 X PER DAG 2 DOSIS)
  9. ROSUVASTATIN. [Suspect]
     Active Substance: ROSUVASTATIN
     Indication: LOW DENSITY LIPOPROTEIN INCREASED
     Dosage: 40 MILLIGRAM, QD (1X PER DAG 1 STUK)
     Dates: start: 20200326, end: 20210114
  10. KALIUMCHLORIDE [Concomitant]
     Dosage: 30 MILLIGRAM, BID (2 X PER DAG 30 MILLILITER)
  11. LEVOCETIRIZINE [Concomitant]
     Active Substance: LEVOCETIRIZINE
     Dosage: 5 MILLIGRAM, QD (1 X PER DAY 1 PIECE)

REACTIONS (1)
  - Renal tubular necrosis [Not Recovered/Not Resolved]
